FAERS Safety Report 20412548 (Version 2)
Quarter: 2022Q2

REPORT INFORMATION
  Report Type: Spontaneous
  Country: CO (occurrence: CO)
  Receive Date: 20220201
  Receipt Date: 20220505
  Transmission Date: 20220721
  Serious: Yes (Hospitalization)
  Sender: FDA-Public Use
  Company Number: CO-PFIZER INC-202200129467

PATIENT
  Sex: Male

DRUGS (2)
  1. INLYTA [Suspect]
     Active Substance: AXITINIB
     Indication: Renal cancer metastatic
     Dosage: 50 MG
     Route: 048
     Dates: end: 2021
  2. INLYTA [Suspect]
     Active Substance: AXITINIB
     Dosage: 5 MG
     Route: 048
     Dates: start: 2020, end: 2021

REACTIONS (5)
  - Blood sodium decreased [Recovered/Resolved]
  - Blood potassium decreased [Recovered/Resolved]
  - Toxicity to various agents [Unknown]
  - General physical health deterioration [Not Recovered/Not Resolved]
  - Underweight [Not Recovered/Not Resolved]

NARRATIVE: CASE EVENT DATE: 20210101
